FAERS Safety Report 6917732-3 (Version None)
Quarter: 2010Q3

REPORT INFORMATION
  Report Type: 
  Country: None (occurrence: None)
  Receive Date: 20100810
  Receipt Date: 20091008
  Transmission Date: 20110219
  Serious: No
  Sender: FDA-Public Use
  Company Number: US-TYCO HEALTHCARE/MALLINCKRODT-T200901866

PATIENT
  Sex: Female
  Weight: 74.83 kg

DRUGS (8)
  1. PAMELOR [Suspect]
     Indication: DEPRESSION
     Dosage: 3 CAPS AT NIGHT
     Route: 048
  2. NORTRIPTYLINE HYDROCHLORIDE [Suspect]
     Indication: DEPRESSION
  3. KLONOPIN [Concomitant]
     Indication: PANIC DISORDER
     Dosage: 0.5 MG, UNK
     Route: 048
     Dates: start: 19840101
  4. KLONOPIN [Concomitant]
     Indication: SLEEP DISORDER
  5. METHYLPHENIDATE [Concomitant]
     Dosage: 5 MG,1 TAB AM, 1/2 TAB PM
     Route: 048
  6. LEVOTHYROXINE SODIUM [Concomitant]
     Indication: HYPOTHYROIDISM
     Dosage: 100 UG, QD
     Route: 048
  7. ZOVIA 1/35E-21 [Concomitant]
     Indication: UTERINE PAIN
     Dosage: UNK
     Route: 048
  8. ZOVIA 1/35E-21 [Concomitant]
     Indication: UTERINE HAEMORRHAGE

REACTIONS (7)
  - ARRHYTHMIA [None]
  - DRUG EFFECT DECREASED [None]
  - DRUG TOLERANCE [None]
  - HEART RATE INCREASED [None]
  - MALAISE [None]
  - NIGHTMARE [None]
  - PANIC ATTACK [None]
